FAERS Safety Report 9184676 (Version 1)
Quarter: 2013Q1

REPORT INFORMATION
  Report Type: Spontaneous
  Country: US (occurrence: US)
  Receive Date: 20130324
  Receipt Date: 20130324
  Transmission Date: 20140127
  Serious: No
  Sender: FDA-Public Use
  Company Number: US-B.I. PHARMACEUTICALS,INC./RIDGEFIELD-2013-BI-06892BP

PATIENT
  Sex: Male

DRUGS (1)
  1. FLOMAX CAPSULES [Suspect]

REACTIONS (1)
  - Visual impairment [Unknown]
